FAERS Safety Report 5307246-9 (Version None)
Quarter: 2007Q2

REPORT INFORMATION
  Report Type: 
  Country: None (occurrence: None)
  Receive Date: 20070425
  Receipt Date: 20070423
  Transmission Date: 20071010
  Serious: Yes (Other)
  Sender: FDA-Public Use
  Company Number: US-GLAXOSMITHKLINE-A0646823A

PATIENT
  Age: 70 Year
  Sex: Female

DRUGS (7)
  1. ADVAIR DISKUS 100/50 [Suspect]
     Indication: CHRONIC OBSTRUCTIVE PULMONARY DISEASE
     Dosage: 1PUFF TWICE PER DAY
     Route: 055
     Dates: start: 20020101
  2. AVANDARYL [Suspect]
     Dosage: 1TAB PER DAY
     Route: 048
     Dates: start: 20061201, end: 20061201
  3. HYTRIN [Concomitant]
  4. TORSEMIDE [Concomitant]
  5. GLIMEPIRIDE [Concomitant]
  6. TOPAMAX [Concomitant]
  7. VITAMIN PREPARATION [Concomitant]

REACTIONS (2)
  - HYPOGLYCAEMIA [None]
  - TONGUE ULCERATION [None]
